FAERS Safety Report 10018508 (Version 1)
Quarter: 2014Q1

REPORT INFORMATION
  Report Type: Spontaneous
  Country: US (occurrence: None)
  Receive Date: 20140314
  Receipt Date: 20140314
  Transmission Date: 20141002
  Serious: Yes (Hospitalization)
  Sender: FDA-Public Use
  Company Number: None

PATIENT
  Age: 61 Year
  Sex: Female
  Weight: 65.77 kg

DRUGS (1)
  1. COPAXONE [Suspect]
     Indication: MULTIPLE SCLEROSIS
     Dosage: GIVEN INTO/UNDER THE SKIN
     Dates: start: 20140312

REACTIONS (5)
  - Injection site pain [None]
  - Loss of consciousness [None]
  - Head injury [None]
  - Laceration [None]
  - Fall [None]
